FAERS Safety Report 18078523 (Version 1)
Quarter: 2020Q3

REPORT INFORMATION
  Report Type: Spontaneous
  Country: US (occurrence: US)
  Receive Date: 20200727
  Receipt Date: 20200727
  Transmission Date: 20201103
  Serious: No
  Sender: FDA-Public Use
  Company Number: None

PATIENT
  Age: 84 Year
  Sex: Female
  Weight: 48.99 kg

DRUGS (12)
  1. MAG?OXIDE [Concomitant]
     Active Substance: MAGNESIUM OXIDE
  2. REMERON [Concomitant]
     Active Substance: MIRTAZAPINE
  3. SYNTHROID [Concomitant]
     Active Substance: LEVOTHYROXINE SODIUM
  4. PEPCID [Concomitant]
     Active Substance: FAMOTIDINE
  5. RYDAPT [Suspect]
     Active Substance: MIDOSTAURIN
     Indication: MASTOCYTOSIS
     Route: 048
     Dates: start: 20200706
  6. ZOFRAN [Concomitant]
     Active Substance: ONDANSETRON HYDROCHLORIDE
  7. VITAMIN D2 [Concomitant]
     Active Substance: ERGOCALCIFEROL
  8. ALPRAZOLAM. [Concomitant]
     Active Substance: ALPRAZOLAM
  9. VITAMIN B12 [Concomitant]
     Active Substance: CYANOCOBALAMIN
  10. OMEPRAZOLE. [Concomitant]
     Active Substance: OMEPRAZOLE
  11. MAXZIDE?25 [Concomitant]
     Active Substance: HYDROCHLOROTHIAZIDE\TRIAMTERENE
  12. POTASSIUM CHLORIDE ER [Concomitant]
     Active Substance: POTASSIUM CHLORIDE

REACTIONS (1)
  - Nausea [None]

NARRATIVE: CASE EVENT DATE: 20200727
